FAERS Safety Report 21402748 (Version 1)
Quarter: 2022Q4

REPORT INFORMATION
  Report Type: Report from Study
  Country: US (occurrence: US)
  Receive Date: 20221003
  Receipt Date: 20221003
  Transmission Date: 20230113
  Serious: Yes (Other)
  Sender: FDA-Public Use
  Company Number: US-OTSUKA-2022_044915

PATIENT
  Sex: Male

DRUGS (2)
  1. BREXPIPRAZOLE [Suspect]
     Active Substance: BREXPIPRAZOLE
     Indication: Schizophrenia
     Dosage: 1 MG, QD (THEN UP TO THE TARGET DOSAGE OF 2 MG ONCE DAILY)
     Route: 065
  2. BREXPIPRAZOLE [Suspect]
     Active Substance: BREXPIPRAZOLE
     Dosage: 4 MG, QD
     Route: 065

REACTIONS (6)
  - Schizophrenia [Unknown]
  - Drug dependence [Unknown]
  - Inability to afford medication [Unknown]
  - Insurance issue [Unknown]
  - Product dose omission issue [Unknown]
  - Therapeutic response shortened [Unknown]
